FAERS Safety Report 10060623 (Version 2)
Quarter: 2014Q2

REPORT INFORMATION
  Report Type: Report from Study
  Country: DE (occurrence: DE)
  Receive Date: 20140404
  Receipt Date: 20140506
  Transmission Date: 20141212
  Serious: Yes (Other)
  Sender: FDA-Public Use
  Company Number: DE-NAPPMUNDI-DEU-2014-0014061

PATIENT
  Age: 22 Year
  Sex: Male
  Weight: 61.2 kg

DRUGS (23)
  1. TARGIN  RETARDTABLETTEN [Suspect]
     Indication: PAIN
     Dosage: UNK
     Route: 048
     Dates: start: 20140118, end: 20140125
  2. OXYGESIC [Suspect]
     Indication: PAIN
     Dosage: UNK
     Route: 048
     Dates: start: 20140123, end: 20140125
  3. OXYCODONE HYDROCHLORIDE [Suspect]
     Indication: PAIN
     Dosage: UNK
     Dates: start: 20140120, end: 20140120
  4. TAVOR                              /00273201/ [Suspect]
     Indication: PAIN
     Dosage: UNK
     Dates: start: 20140126, end: 20140126
  5. PIRITRAMIDE [Suspect]
     Indication: PAIN
     Dosage: UNK
     Route: 042
     Dates: start: 20140125, end: 20140125
  6. DIPIDOLOR [Suspect]
  7. PASPERTIN /00041902/ [Suspect]
     Indication: NAUSEA
     Dosage: UNK
     Route: 042
     Dates: start: 20140121, end: 20140125
  8. IMODIUM [Concomitant]
     Dosage: UNK
     Dates: start: 20140104
  9. PANTOZOL                           /01263204/ [Concomitant]
     Dosage: UNK
     Dates: start: 20131203
  10. CLEXANE [Concomitant]
     Dosage: UNK
     Dates: start: 20140107
  11. ROPIVACAINE [Concomitant]
     Dosage: UNK
     Dates: start: 201401
  12. ONDANSETRON [Concomitant]
     Indication: NAUSEA
     Dosage: UNK
     Dates: start: 20140124
  13. DECORTIN [Concomitant]
     Indication: COLITIS ULCERATIVE
     Dosage: UNK
     Dates: start: 20131125
  14. CANCIDAS [Concomitant]
     Indication: INFECTION PROPHYLAXIS
     Dosage: UNK
     Route: 042
     Dates: start: 20140123
  15. VFEND [Concomitant]
     Dosage: UNK
     Dates: start: 20140121
  16. PIPERACILLIN + TAZOBACTAM [Concomitant]
     Dosage: UNK
     Dates: start: 20140120
  17. MERONEM [Concomitant]
     Dosage: UNK
     Dates: start: 20140121
  18. SODIUM CHLORIDE [Concomitant]
     Dosage: UNK
     Dates: start: 20140118
  19. ACC                                /00082801/ [Concomitant]
     Dosage: UNK
     Dates: start: 20140121
  20. VIGANTOLETTEN [Concomitant]
     Dosage: UNK
     Dates: start: 20140108
  21. ASS [Concomitant]
     Dosage: UNK
  22. NUTRIFLEX                          /01526401/ [Concomitant]
     Dosage: UNK
     Dates: start: 20140118
  23. STERO ISO [Concomitant]
     Dosage: UNK
     Dates: start: 20140115

REACTIONS (1)
  - Delirium [Recovered/Resolved]
